FAERS Safety Report 20075439 (Version 1)
Quarter: 2021Q4

REPORT INFORMATION
  Report Type: Spontaneous
  Country: US (occurrence: US)
  Receive Date: 20211116
  Receipt Date: 20211116
  Transmission Date: 20220303
  Serious: No
  Sender: FDA-Public Use
  Company Number: US-ABBVIE-21K-163-4052044-00

PATIENT
  Age: 65 Year
  Sex: Female

DRUGS (7)
  1. RINVOQ [Suspect]
     Active Substance: UPADACITINIB
     Indication: Rheumatoid arthritis
     Route: 048
     Dates: start: 2019
  2. MODERNA COVID-19 VACCINE [Concomitant]
     Active Substance: CX-024414
     Indication: COVID-19 immunisation
     Dosage: MODERNA
     Route: 030
     Dates: start: 20210116, end: 20210116
  3. MODERNA COVID-19 VACCINE [Concomitant]
     Active Substance: CX-024414
     Dosage: MODERNA
     Route: 030
     Dates: start: 20210211, end: 20210211
  4. METHOTREXATE [Concomitant]
     Active Substance: METHOTREXATE
     Indication: Rheumatoid arthritis
  5. TRAMADOL [Concomitant]
     Active Substance: TRAMADOL
     Indication: Pain
  6. PREDNISONE [Concomitant]
     Active Substance: PREDNISONE
     Indication: Rheumatoid arthritis
  7. CALCIUM [Concomitant]
     Active Substance: CALCIUM
     Indication: Supplementation therapy

REACTIONS (1)
  - SARS-CoV-2 antibody test positive [Not Recovered/Not Resolved]

NARRATIVE: CASE EVENT DATE: 20210801
